FAERS Safety Report 4940456-9 (Version None)
Quarter: 2006Q1

REPORT INFORMATION
  Report Type: 
  Country: None (occurrence: None)
  Receive Date: 20060131
  Receipt Date: 20051218
  Transmission Date: 20060701
  Serious: No
  Sender: FDA-Public Use
  Company Number: 200520681US

PATIENT
  Sex: Female

DRUGS (1)
  1. KETEK [Suspect]
     Dosage: 400 MG BID PO
     Route: 048
     Dates: start: 20051218, end: 20051218

REACTIONS (1)
  - DIARRHOEA [None]
